FAERS Safety Report 7591170-5 (Version None)
Quarter: 2011Q3

REPORT INFORMATION
  Report Type: 
  Country: None (occurrence: None)
  Receive Date: 20110705
  Receipt Date: 20110623
  Transmission Date: 20111222
  Serious: Yes (Hospitalization)
  Sender: FDA-Public Use
  Company Number: US-ASTRAZENECA-2011SE38190

PATIENT
  Age: 26 Year
  Sex: Female
  Weight: 86.2 kg

DRUGS (5)
  1. SEROQUEL [Suspect]
     Indication: BIPOLAR DISORDER
     Route: 048
     Dates: start: 20100401, end: 20100701
  2. PRENATAL VITAMINS [Concomitant]
  3. SEROQUEL [Suspect]
     Route: 048
     Dates: start: 20110323, end: 20110501
  4. PRESTIQUE [Concomitant]
  5. SEROQUEL [Suspect]
     Route: 048
     Dates: start: 20110501

REACTIONS (5)
  - SOMNOLENCE [None]
  - DRUG REHABILITATION [None]
  - MATERNAL EXPOSURE DURING PREGNANCY [None]
  - INSOMNIA [None]
  - ALCOHOL REHABILITATION [None]
